FAERS Safety Report 4341141-7 (Version None)
Quarter: 2004Q2

REPORT INFORMATION
  Report Type: 
  Country: None (occurrence: None)
  Receive Date: 20040419
  Receipt Date: 20040413
  Transmission Date: 20050107
  Serious: Yes (Other)
  Sender: FDA-Public Use
  Company Number: US-GLAXOSMITHKLINE-A0507071A

PATIENT
  Sex: Female

DRUGS (1)
  1. PAXIL [Suspect]
     Indication: DRUG USE FOR UNKNOWN INDICATION
     Route: 065

REACTIONS (6)
  - INAPPROPRIATE AFFECT [None]
  - NAUSEA [None]
  - NIGHTMARE [None]
  - SLEEP TERROR [None]
  - SUICIDAL IDEATION [None]
  - VOMITING [None]
